FAERS Safety Report 15215982 (Version 1)
Quarter: 2018Q3

REPORT INFORMATION
  Report Type: Spontaneous
  Country: CZ (occurrence: CZ)
  Receive Date: 20180730
  Receipt Date: 20180730
  Transmission Date: 20181010
  Serious: Yes (Other)
  Sender: FDA-Public Use
  Company Number: CZ-SA-2018SA194784

PATIENT
  Sex: Female

DRUGS (6)
  1. TRASTUZUMAB. [Suspect]
     Active Substance: TRASTUZUMAB
     Dosage: 6 MG/KG, IN 30 MINUTES INFUSION
     Route: 041
     Dates: start: 201506, end: 201506
  2. PERTUZUMAB. [Suspect]
     Active Substance: PERTUZUMAB
     Dosage: 420 MG/M2, IN 30 MINUTES INFUSION
     Route: 041
     Dates: start: 201506, end: 201506
  3. DOCETAXEL. [Suspect]
     Active Substance: DOCETAXEL
     Indication: HER-2 POSITIVE BREAST CANCER
     Dosage: 100 MG/M2, UNK
     Route: 065
     Dates: start: 201412, end: 201506
  4. TRASTUZUMAB. [Suspect]
     Active Substance: TRASTUZUMAB
     Indication: HER-2 POSITIVE BREAST CANCER
     Dosage: 8 MG/KG, IN 90 MINUTES INFUSION
     Route: 041
     Dates: start: 201412, end: 201412
  5. PERTUZUMAB. [Suspect]
     Active Substance: PERTUZUMAB
     Indication: HER-2 POSITIVE BREAST CANCER
     Dosage: 840 MG, IN 90 MINUTES INFUSION
     Route: 041
     Dates: start: 201412, end: 201412
  6. DOCETAXEL. [Suspect]
     Active Substance: DOCETAXEL
     Dosage: 75 MG/M2, UNK
     Dates: start: 201412

REACTIONS (1)
  - Polyneuropathy [Recovered/Resolved]
